FAERS Safety Report 20506230 (Version 1)
Quarter: 2022Q1

REPORT INFORMATION
  Report Type: Spontaneous
  Country: US (occurrence: None)
  Receive Date: 20220222
  Receipt Date: 20220222
  Transmission Date: 20220423
  Serious: No
  Sender: FDA-Public Use
  Company Number: None

PATIENT
  Sex: Female

DRUGS (1)
  1. HUMIRA [Suspect]
     Active Substance: ADALIMUMAB
     Dosage: FREQUENCY : WEEKLY;?OTHER ROUTE : PEN;?
     Route: 050
     Dates: start: 202106

REACTIONS (3)
  - Injection site swelling [None]
  - Injection site erythema [None]
  - Oedema peripheral [None]
